FAERS Safety Report 20838397 (Version 4)
Quarter: 2024Q2

REPORT INFORMATION
  Report Type: Spontaneous
  Country: CA (occurrence: CA)
  Receive Date: 20220517
  Receipt Date: 20240417
  Transmission Date: 20240716
  Serious: Yes (Life-Threatening, Hospitalization, Other)
  Sender: FDA-Public Use
  Company Number: CA-Accord-263247

PATIENT
  Age: 53 Year
  Sex: Female

DRUGS (6)
  1. CLONAZEPAM [Suspect]
     Active Substance: CLONAZEPAM
     Indication: Product used for unknown indication
     Dosage: 48 TABLETS OF 1MG OF CLONAZEPAM
     Route: 048
  2. QUETIAPINE [Suspect]
     Active Substance: QUETIAPINE
     Indication: Product used for unknown indication
     Dosage: 24 TABLETS OF 50 MG OF QUETIAPINE,??ACH-QUETIAPINE FUMARATE XR, TABLET (EXTENDED- RELEASE)
     Route: 048
  3. LORAZEPAM [Suspect]
     Active Substance: LORAZEPAM
     Indication: Product used for unknown indication
     Dosage: 90 TABLETS OF 0.5 MG OF LORAZEPAM
     Route: 048
  4. ALPRAZOLAM [Suspect]
     Active Substance: ALPRAZOLAM
     Indication: Product used for unknown indication
     Dosage: 70 TABLETS OF 1 MG OF ALPRAZOLAM
     Route: 048
  5. DEXTROMETHORPHAN [Suspect]
     Active Substance: DEXTROMETHORPHAN
     Indication: Product used for unknown indication
     Dosage: 1 BOTTLE OF NYQUIL
     Route: 048
  6. ZOPICLONE [Suspect]
     Active Substance: ZOPICLONE
     Indication: Product used for unknown indication
     Dosage: 10 TABLETS OF 7.5 MG OF ZOPICLONE
     Route: 048

REACTIONS (6)
  - Intentional overdose [Unknown]
  - Loss of consciousness [Recovered/Resolved]
  - Toxicity to various agents [Unknown]
  - Blood pressure decreased [Recovered/Resolved]
  - Respiratory rate decreased [Recovered/Resolved]
  - Sinus tachycardia [Recovered/Resolved]
